FAERS Safety Report 5100680-1 (Version None)
Quarter: 2006Q3

REPORT INFORMATION
  Report Type: 
  Country: None (occurrence: None)
  Receive Date: 20060906
  Receipt Date: 20060821
  Transmission Date: 20061208
  Serious: Yes (Hospitalization)
  Sender: FDA-Public Use
  Company Number: A-NJ2006-12940

PATIENT
  Age: 64 Year
  Sex: Female
  Weight: 84.4 kg

DRUGS (8)
  1. TRACLEER [Suspect]
     Indication: PULMONARY HYPERTENSION
     Dosage: 125 MG, BID, ORAL
     Route: 048
     Dates: start: 20060714, end: 20060728
  2. MORPHINE SULFATE [Suspect]
     Indication: CHEST PAIN
  3. COUMADIN [Concomitant]
  4. PREDNISONE [Concomitant]
  5. ALTACE [Concomitant]
  6. BEXTRA [Concomitant]
  7. NORVASC [Concomitant]
  8. TORADOL [Concomitant]

REACTIONS (18)
  - ABDOMINAL PAIN [None]
  - ALANINE AMINOTRANSFERASE INCREASED [None]
  - ASPARTATE AMINOTRANSFERASE INCREASED [None]
  - BLOOD ALKALINE PHOSPHATASE INCREASED [None]
  - BLOOD GLUCOSE INCREASED [None]
  - CHEST PAIN [None]
  - DYSPNOEA [None]
  - FIBRIN D DIMER INCREASED [None]
  - INFECTION [None]
  - INTERNATIONAL NORMALISED RATIO INCREASED [None]
  - LIVER FUNCTION TEST ABNORMAL [None]
  - MYCOPLASMA INFECTION [None]
  - NAUSEA [None]
  - PAIN [None]
  - PYREXIA [None]
  - VIRAL INFECTION [None]
  - VOMITING [None]
  - WHITE BLOOD CELL COUNT INCREASED [None]
